FAERS Safety Report 10172119 (Version 2)
Quarter: 2014Q2

REPORT INFORMATION
  Report Type: Spontaneous
  Country: US (occurrence: US)
  Receive Date: 20140515
  Receipt Date: 20140515
  Transmission Date: 20141212
  Serious: Yes (Hospitalization, Other)
  Sender: FDA-Public Use
  Company Number: PHHY2013US135224

PATIENT
  Age: 46 Year
  Sex: Male
  Weight: 105.7 kg

DRUGS (7)
  1. CICLOSPORIN [Suspect]
     Indication: GLOMERULONEPHRITIS
  2. PREDNISONE [Suspect]
     Indication: GLOMERULONEPHRITIS
  3. LISINOPRIL [Suspect]
     Indication: GLOMERULONEPHRITIS
     Dosage: 40 MG, BID
  4. LISINOPRIL [Suspect]
     Dosage: 40 MG, QD
  5. HYDROCHLOROTHIAZIDE W/OLMESARTAN MEDOXOMIL [Suspect]
     Indication: PROTEINURIA
     Dosage: 40 MG, QD, 40/12.5 MG ONCE DAILY
  6. HYDROCHLOROTHIAZIDE W/OLMESARTAN MEDOXOMIL [Suspect]
     Indication: HYPERTENSION
  7. SIMVASTATIN [Concomitant]
     Indication: BLOOD CHOLESTEROL INCREASED
     Dosage: 40 MG, QD

REACTIONS (4)
  - Herpes zoster [Unknown]
  - Glomerulonephritis membranous [Recovering/Resolving]
  - Disease progression [Recovering/Resolving]
  - Drug ineffective [Unknown]
